FAERS Safety Report 9964408 (Version 2)
Quarter: 2014Q2

REPORT INFORMATION
  Report Type: Spontaneous
  Country: US (occurrence: US)
  Receive Date: 20140305
  Receipt Date: 20140626
  Transmission Date: 20141212
  Serious: Yes (Hospitalization)
  Sender: FDA-Public Use
  Company Number: PHHY2014US024845

PATIENT
  Age: 34 Year
  Sex: Male

DRUGS (3)
  1. PHENYTOIN [Suspect]
     Indication: COMPLEX PARTIAL SEIZURES
     Dosage: 300 MG EVERY MORNING AND 400 MG AT BEDTIME
  2. ZONISAMIDE [Interacting]
     Dosage: 200 MG, DAILY
  3. ZONISAMIDE [Interacting]
     Dosage: 300 MG, DAILY

REACTIONS (14)
  - Sleep disorder [Recovered/Resolved]
  - Psychotic disorder [Recovered/Resolved]
  - Disturbance in attention [Recovered/Resolved]
  - Paranoia [Recovered/Resolved]
  - Delusion [Recovered/Resolved]
  - Gait disturbance [Recovered/Resolved]
  - Palpitations [Recovered/Resolved]
  - Hyperreflexia [Recovered/Resolved]
  - Nystagmus [Recovered/Resolved]
  - Asthenia [Recovered/Resolved]
  - Dizziness [Recovered/Resolved]
  - Toxicity to various agents [Recovered/Resolved]
  - Drug interaction [Recovered/Resolved]
  - Drug level increased [Recovered/Resolved]
